FAERS Safety Report 22588731 (Version 1)
Quarter: 2023Q2

REPORT INFORMATION
  Report Type: Spontaneous
  Country: US (occurrence: US)
  Receive Date: 20230612
  Receipt Date: 20230612
  Transmission Date: 20230722
  Serious: Yes (Other)
  Sender: FDA-Public Use
  Company Number: US-BAYER-2023A080902

PATIENT
  Age: 5 Month
  Sex: Male

DRUGS (3)
  1. ASPIRIN [Suspect]
     Active Substance: ASPIRIN
  2. ENOXAPARIN [Concomitant]
     Active Substance: ENOXAPARIN
  3. ALTEPLASE [Concomitant]
     Active Substance: ALTEPLASE

REACTIONS (2)
  - Haemorrhage [None]
  - Off label use [None]
